FAERS Safety Report 5895277-X (Version None)
Quarter: 2008Q3

REPORT INFORMATION
  Report Type: 
  Country: None (occurrence: None)
  Receive Date: 20080924
  Receipt Date: 20080918
  Transmission Date: 20090109
  Serious: Yes (Hospitalization)
  Sender: FDA-Public Use
  Company Number: US-BAYER-200833912NA

PATIENT
  Age: 49 Year
  Sex: Female

DRUGS (1)
  1. MIRENA [Suspect]
     Indication: MENORRHAGIA
     Route: 015
     Dates: start: 20080501

REACTIONS (5)
  - ABDOMINAL PAIN [None]
  - HAEMORRHAGE [None]
  - MIGRAINE [None]
  - PARAESTHESIA [None]
  - VOMITING [None]
